FAERS Safety Report 21656727 (Version 1)
Quarter: 2022Q4

REPORT INFORMATION
  Report Type: Spontaneous
  Country: US (occurrence: US)
  Receive Date: 20221129
  Receipt Date: 20221129
  Transmission Date: 20230113
  Serious: No
  Sender: FDA-Public Use
  Company Number: US-SA-SAC20221125000983

PATIENT
  Age: 8 Year
  Sex: Male
  Weight: 52.163 kg

DRUGS (3)
  1. DUPIXENT [Suspect]
     Active Substance: DUPILUMAB
     Indication: Eczema
     Dosage: 1 DF, QOW
     Route: 058
     Dates: start: 202201, end: 202208
  2. TACROLIMUS [Concomitant]
     Active Substance: TACROLIMUS
  3. KETOCONAZOLE [Concomitant]
     Active Substance: KETOCONAZOLE

REACTIONS (2)
  - Eczema [Unknown]
  - Skin swelling [Unknown]

NARRATIVE: CASE EVENT DATE: 20220101
